FAERS Safety Report 7293228-7 (Version None)
Quarter: 2011Q1

REPORT INFORMATION
  Report Type: 
  Country: None (occurrence: None)
  Receive Date: 20110210
  Receipt Date: 20110210
  Transmission Date: 20110831
  Serious: Yes (Life-Threatening, Hospitalization)
  Sender: FDA-Public Use
  Company Number: None

PATIENT
  Age: 66 Year
  Sex: Female
  Weight: 72.5755 kg

DRUGS (2)
  1. LYRICA [Suspect]
     Indication: PROPHYLAXIS
     Dosage: 1 CAPSULE 1 PER 24 HRS. PO
     Route: 048
     Dates: start: 20080615, end: 20080629
  2. LYRICA [Suspect]
     Indication: ULCER
     Dosage: 1 CAPSULE 1 PER 24 HRS. PO
     Route: 048
     Dates: start: 20080615, end: 20080629

REACTIONS (6)
  - FALL [None]
  - DROOLING [None]
  - DRUG WITHDRAWAL HEADACHE [None]
  - OVERDOSE [None]
  - FATIGUE [None]
  - FEELING COLD [None]
